FAERS Safety Report 25270580 (Version 2)
Quarter: 2025Q2

REPORT INFORMATION
  Report Type: Report from Study
  Country: US (occurrence: US)
  Receive Date: 20250505
  Receipt Date: 20250602
  Transmission Date: 20250716
  Serious: Yes (Life-Threatening, Hospitalization, Other)
  Sender: JOHNSON AND JOHNSON
  Company Number: US-JNJFOC-20250501770

PATIENT

DRUGS (3)
  1. PALIPERIDONE [Suspect]
     Active Substance: PALIPERIDONE
     Indication: Schizoaffective disorder
     Route: 065
  2. BENZODIAZEPINE [Concomitant]
     Active Substance: BENZODIAZEPINE
     Indication: Product used for unknown indication
  3. LORAZEPAM [Concomitant]
     Active Substance: LORAZEPAM
     Indication: Product used for unknown indication

REACTIONS (13)
  - Suicide attempt [Unknown]
  - Hospitalisation [Unknown]
  - Homicide [Unknown]
  - Galactorrhoea [Unknown]
  - Loss of libido [Unknown]
  - Breast discharge [Unknown]
  - Sexual dysfunction [Unknown]
  - Akathisia [Unknown]
  - Headache [Unknown]
  - Insomnia [Unknown]
  - Hypertonia [Unknown]
  - Dizziness [Unknown]
  - Dyspepsia [Unknown]
